FAERS Safety Report 24978916 (Version 1)
Quarter: 2025Q1

REPORT INFORMATION
  Report Type: Spontaneous
  Country: JP (occurrence: JP)
  Receive Date: 20250218
  Receipt Date: 20250218
  Transmission Date: 20250408
  Serious: No
  Sender: ASTELLAS
  Company Number: JP-ASTELLAS-2025-AER-004718

PATIENT
  Age: 61 Year
  Sex: Female

DRUGS (2)
  1. VESICARE [Suspect]
     Active Substance: SOLIFENACIN SUCCINATE
     Indication: Product used for unknown indication
     Route: 065
  2. VESICARE [Suspect]
     Active Substance: SOLIFENACIN SUCCINATE
     Dosage: MORNING AND BEFORE GOING TO BED
     Route: 065

REACTIONS (1)
  - Intercepted product prescribing error [Unknown]
